FAERS Safety Report 6243358-3 (Version None)
Quarter: 2009Q2

REPORT INFORMATION
  Report Type: 
  Country: None (occurrence: None)
  Receive Date: 20090622
  Receipt Date: 20090622
  Transmission Date: 20091009
  Serious: No
  Sender: FDA-Public Use
  Company Number: None

PATIENT
  Age: 62 Year
  Sex: Female
  Weight: 68.4932 kg

DRUGS (2)
  1. ZICAM COLD REMEDY NASAL GEL NONE HOMEPATHIC MATRIX INITIATIVES [Suspect]
     Indication: NASOPHARYNGITIS
     Dosage: 1 SPRAY EACH NOSTRIL ONLY USED ONCE
     Dates: start: 20071124, end: 20071124
  2. ZICAM COLD REMEDY NASAL GEL NONE HOMEPATHIC MATRIX INITIATIVES [Suspect]
     Indication: PROPHYLAXIS
     Dosage: 1 SPRAY EACH NOSTRIL ONLY USED ONCE
     Dates: start: 20071124, end: 20071124

REACTIONS (9)
  - AGEUSIA [None]
  - ANOSMIA [None]
  - DEPRESSION [None]
  - FEELING ABNORMAL [None]
  - MALAISE [None]
  - NASAL DISCOMFORT [None]
  - PAROSMIA [None]
  - PRODUCT QUALITY ISSUE [None]
  - RHINALGIA [None]
